FAERS Safety Report 12947116 (Version 4)
Quarter: 2017Q1

REPORT INFORMATION
  Report Type: Report from Study
  Country: US (occurrence: US)
  Receive Date: 20161116
  Receipt Date: 20170310
  Transmission Date: 20170428
  Serious: Yes (Hospitalization)
  Sender: FDA-Public Use
  Company Number: US-TAIHO ONCOLOGY INC-EU-2016-02902

PATIENT
  Age: 60 Year
  Sex: Female
  Weight: 55.39 kg

DRUGS (10)
  1. LONSURF [Suspect]
     Active Substance: TIPIRACIL HYDROCHLORIDE\TRIFLURIDINE
     Indication: APPENDIX CANCER
  2. VALACICLOVIR HYDROCHLORIDE [Concomitant]
     Active Substance: VALACYCLOVIR HYDROCHLORIDE
     Dosage: NI
  3. POTASSIUM [Concomitant]
     Active Substance: POTASSIUM
     Dosage: NI
  4. LEVAQUIN [Concomitant]
     Active Substance: LEVOFLOXACIN
     Dosage: NI
  5. ERBITUX [Concomitant]
     Active Substance: CETUXIMAB
     Route: 042
  6. IRINOTECAN [Suspect]
     Active Substance: IRINOTECAN
     Indication: COLON CANCER
     Route: 042
  7. OPDIVO [Concomitant]
     Active Substance: NIVOLUMAB
     Indication: COLON CANCER
     Route: 042
  8. PRISTIQ EXTENDED-RELEASE [Concomitant]
     Active Substance: DESVENLAFAXINE SUCCINATE
     Dosage: NI
  9. RANITIDINE. [Concomitant]
     Active Substance: RANITIDINE
     Dosage: NI
  10. LONSURF [Suspect]
     Active Substance: TIPIRACIL HYDROCHLORIDE\TRIFLURIDINE
     Indication: COLON CANCER
     Dosage: CYCLE 2 STARTED ON AN UNSPECIFIED DATE IN 2016
     Route: 048
     Dates: start: 201608, end: 20161124

REACTIONS (22)
  - Weight decreased [Unknown]
  - Gastrointestinal disorder [Unknown]
  - Diarrhoea [Unknown]
  - Bile duct obstruction [Unknown]
  - Blood potassium decreased [Unknown]
  - Dehydration [Unknown]
  - Decreased appetite [Unknown]
  - Vomiting [Unknown]
  - Abdominal pain [Unknown]
  - Ureteric obstruction [Unknown]
  - Red blood cell count decreased [Unknown]
  - Malaise [Unknown]
  - Hepatic enzyme increased [Unknown]
  - Jaundice [Unknown]
  - Febrile neutropenia [Unknown]
  - Abdominal pain upper [Unknown]
  - Appetite disorder [Unknown]
  - Drug dose omission [Unknown]
  - White blood cell count decreased [Unknown]
  - Nausea [Unknown]
  - Clostridium difficile infection [Unknown]
  - Stress [Unknown]

NARRATIVE: CASE EVENT DATE: 2016
